FAERS Safety Report 8052245-X (Version None)
Quarter: 2012Q1

REPORT INFORMATION
  Report Type: 
  Country: None (occurrence: None)
  Receive Date: 20120118
  Receipt Date: 20120112
  Transmission Date: 20120608
  Serious: Yes (Death, Other)
  Sender: FDA-Public Use
  Company Number: TW-ROXANE LABORATORIES, INC.-2012-EU-00157GD

PATIENT
  Sex: Female

DRUGS (5)
  1. MORPHINE [Suspect]
     Indication: PAIN
  2. FENTANYL [Suspect]
     Indication: PAIN
  3. ANTIBIOTICS [Concomitant]
     Indication: PYURIA
  4. INSULIN [Concomitant]
     Indication: DIABETES MELLITUS
  5. ANTIBIOTICS [Concomitant]
     Indication: PYREXIA

REACTIONS (8)
  - CEREBRAL INFARCTION [None]
  - QUADRIPLEGIA [None]
  - DEPRESSED LEVEL OF CONSCIOUSNESS [None]
  - OVERDOSE [None]
  - PNEUMONIA [None]
  - RESPIRATORY FAILURE [None]
  - SEPSIS [None]
  - DRUG ADMINISTRATION ERROR [None]
